FAERS Safety Report 7747300-5 (Version None)
Quarter: 2011Q3

REPORT INFORMATION
  Report Type: 
  Country: None (occurrence: None)
  Receive Date: 20110913
  Receipt Date: 20110909
  Transmission Date: 20111222
  Serious: Yes (Other)
  Sender: FDA-Public Use
  Company Number: GR-MERCK-1109GRC00002

PATIENT
  Age: 26 Year
  Sex: Male
  Weight: 98 kg

DRUGS (1)
  1. SINGULAIR [Suspect]
     Indication: ASTHMA
     Route: 048
     Dates: start: 20110417, end: 20110419

REACTIONS (1)
  - HYPERTRANSAMINASAEMIA [None]
